FAERS Safety Report 7544566-1 (Version None)
Quarter: 2011Q2

REPORT INFORMATION
  Report Type: 
  Country: None (occurrence: None)
  Receive Date: 20110613
  Receipt Date: 20110601
  Transmission Date: 20111010
  Serious: Yes (Hospitalization)
  Sender: FDA-Public Use
  Company Number: US-BRISTOL-MYERS SQUIBB COMPANY-15661572

PATIENT
  Age: 41 Year
  Sex: Male
  Weight: 59 kg

DRUGS (7)
  1. OXYCODONE [Concomitant]
  2. CISPLATIN [Suspect]
     Indication: NON-SMALL CELL LUNG CANCER
     Dosage: INTERRUPTED ON 22APR11 DURTION:30 DAYS C2 D1 ON 15APR11.REMOVED FROM STUDY 26APR11
     Route: 042
     Dates: start: 20110324, end: 20110415
  3. FENTANYL [Concomitant]
  4. NEURONTIN [Concomitant]
  5. LORAZEPAM [Concomitant]
  6. CETUXIMAB [Suspect]
     Indication: NON-SMALL CELL LUNG CANCER
     Dosage: INTRPTD ON 22APR11. DURATION:30 DAYS. C2 D1 ON 15APR11. REMOVED FROM STUDY 26APR11
     Route: 042
     Dates: start: 20110324, end: 20110415
  7. GEMCITABINE HCL [Suspect]
     Indication: NON-SMALL CELL LUNG CANCER
     Dosage: INTERRUPTED ON 22APR11 DURTION:30 DAYS C2 D1 ON 15APR11.REMOVED FROM STUDY 26APR11
     Route: 042
     Dates: start: 20110324, end: 20110415

REACTIONS (2)
  - PNEUMATOSIS INTESTINALIS [None]
  - PAIN [None]
